FAERS Safety Report 15119937 (Version 1)
Quarter: 2018Q3

REPORT INFORMATION
  Report Type: Spontaneous
  Country: US (occurrence: US)
  Receive Date: 20180709
  Receipt Date: 20180709
  Transmission Date: 20181010
  Serious: Yes (Other)
  Sender: FDA-Public Use
  Company Number: PHHY2018US038920

PATIENT
  Age: 30 Year
  Sex: Female

DRUGS (4)
  1. TACROLIMUS. [Suspect]
     Active Substance: TACROLIMUS
     Indication: RENAL TRANSPLANT
     Route: 065
  2. TACROLIMUS. [Suspect]
     Active Substance: TACROLIMUS
     Indication: IMMUNOSUPPRESSANT DRUG THERAPY
  3. INTERLEUKIN?2 [Concomitant]
     Active Substance: ALDESLEUKIN
     Indication: IMMUNOSUPPRESSANT DRUG THERAPY
  4. INTERLEUKIN?2 [Concomitant]
     Active Substance: ALDESLEUKIN
     Indication: RENAL TRANSPLANT
     Route: 065

REACTIONS (4)
  - Fracture [Unknown]
  - Neoplasm malignant [Unknown]
  - Graft loss [Unknown]
  - Bacterial infection [Unknown]
